FAERS Safety Report 4436895-5 (Version None)
Quarter: 2004Q3

REPORT INFORMATION
  Report Type: 
  Country: None (occurrence: None)
  Receive Date: 20040823
  Receipt Date: 20040810
  Transmission Date: 20050211
  Serious: Yes (Other)
  Sender: FDA-Public Use
  Company Number: 200410558BCA

PATIENT
  Age: 72 Year
  Sex: Male

DRUGS (19)
  1. PLASBUMIN-5 [Suspect]
     Dosage: INTRAVENOUS
     Route: 042
     Dates: start: 19890615
  2. RED BLOOD CELLS [Suspect]
     Dosage: ONCE, INTRAVENOUS
     Route: 042
     Dates: start: 19831230
  3. RED BLOOD CELLS [Suspect]
     Dosage: ONCE, INTRAVENOUS
     Route: 042
     Dates: start: 19831230
  4. RED BLOOD CELLS [Suspect]
     Dosage: ONCE, INTRAVENOUS
     Route: 042
     Dates: start: 19890614
  5. RED BLOOD CELLS [Suspect]
     Dosage: ONCE, INTRAVENOUS
     Route: 042
     Dates: start: 19890614
  6. RED BLOOD CELLS [Suspect]
     Dosage: ONCE, INTRAVENOUS
     Route: 042
     Dates: start: 19890615
  7. RED BLOOD CELLS [Suspect]
     Dosage: ONCE, INTRAVENOUS
     Route: 042
     Dates: start: 19890615
  8. RED BLOOD CELLS [Suspect]
  9. RED BLOOD CELLS [Suspect]
  10. RED BLOOD CELLS [Suspect]
  11. RED BLOOD CELLS [Suspect]
  12. RED BLOOD CELLS [Suspect]
  13. FFP (O) (PLASMA PROTEIN FRACTION (HUMAN)) [Suspect]
     Dosage: ONCE, INTRAVENOUS
     Route: 042
     Dates: start: 19890614
  14. FRESH FROZEN PLASMA [Suspect]
  15. FRESH FROZEN PLASMA [Suspect]
  16. FRESH FROZEN PLASMA [Suspect]
  17. CRYO (A) (PLASMA PROTEIN FRACTION (HUMAN)) [Suspect]
     Dosage: INTRAVENOUS
     Route: 042
     Dates: start: 19890614
  18. CRYOPRECIPITATED AHF [Suspect]
  19. CRYOPRECIPITATED AHF [Suspect]

REACTIONS (1)
  - HEPATITIS C ANTIBODY POSITIVE [None]
